FAERS Safety Report 5694833-1 (Version None)
Quarter: 2008Q2

REPORT INFORMATION
  Report Type: 
  Country: None (occurrence: None)
  Receive Date: 20080404
  Receipt Date: 20080326
  Transmission Date: 20081010
  Serious: Yes (Hospitalization)
  Sender: FDA-Public Use
  Company Number: US-GILEAD-2008-0015322

PATIENT
  Sex: Male
  Weight: 106.24 kg

DRUGS (17)
  1. LETAIRIS [Suspect]
     Indication: PULMONARY HYPERTENSION
     Route: 048
     Dates: start: 20080116, end: 20080303
  2. COUMADIN [Concomitant]
     Indication: ANTICOAGULANT THERAPY
     Route: 048
  3. COREG [Concomitant]
     Indication: ESSENTIAL HYPERTENSION
     Route: 048
  4. LANOXIN [Concomitant]
     Indication: ARRHYTHMIA
     Route: 048
  5. ASPIRIN [Concomitant]
     Route: 048
  6. INSPRA [Concomitant]
     Indication: ESSENTIAL HYPERTENSION
     Route: 048
  7. K-DUR [Concomitant]
     Route: 048
  8. IMDUR [Concomitant]
     Indication: ANGINA PECTORIS
     Route: 048
  9. BUMEX [Concomitant]
     Route: 048
  10. PRANDIN [Concomitant]
     Route: 048
  11. PLAVIX [Concomitant]
     Indication: ANTIPLATELET THERAPY
     Route: 048
  12. LIPITOR [Concomitant]
     Route: 048
  13. ALLOPURINOL [Concomitant]
     Indication: GOUT
     Route: 048
  14. PROZAC [Concomitant]
     Indication: DEPRESSION
     Route: 048
  15. CALCITRIOL [Concomitant]
     Indication: OSTEODYSTROPHY
     Route: 048
  16. SLO-MAG [Concomitant]
     Route: 048
  17. PEPCID [Concomitant]
     Route: 048

REACTIONS (1)
  - CARDIAC FAILURE CONGESTIVE [None]
